FAERS Safety Report 17453674 (Version 1)
Quarter: 2020Q1

REPORT INFORMATION
  Report Type: Spontaneous
  Country: US (occurrence: US)
  Receive Date: 20200224
  Receipt Date: 20200224
  Transmission Date: 20200409
  Serious: No
  Sender: FDA-Public Use
  Company Number: US-VYERA PHARMACEUTICALS, LLC-2019VYE00059

PATIENT
  Age: 79 Year
  Sex: Female
  Weight: 61.22 kg

DRUGS (13)
  1. TIMOPTIC [Concomitant]
     Active Substance: TIMOLOL MALEATE
  2. SULFADIAZINE. [Suspect]
     Active Substance: SULFADIAZINE
     Indication: DRUG THERAPY ENHANCEMENT
     Dosage: 500 MG, 4X/DAY
     Dates: start: 20191009, end: 201910
  3. SULFADIAZINE. [Suspect]
     Active Substance: SULFADIAZINE
     Dosage: 500 MG, 1X/DAY
     Dates: start: 201910, end: 2019
  4. PRED FORTE [Concomitant]
     Active Substance: PREDNISOLONE ACETATE
  5. LEUCOVORIN. [Concomitant]
     Active Substance: LEUCOVORIN
  6. AZITHROMYCIN ANHYDROUS. [Concomitant]
     Active Substance: AZITHROMYCIN ANHYDROUS
  7. DIOVAN [Concomitant]
     Active Substance: VALSARTAN
  8. SIMBRINZA [Concomitant]
     Active Substance: BRIMONIDINE TARTRATE\BRINZOLAMIDE
  9. LYRICA [Concomitant]
     Active Substance: PREGABALIN
  10. DARAPRIM [Suspect]
     Active Substance: PYRIMETHAMINE
     Indication: EYE INFECTION TOXOPLASMAL
     Dosage: 4 TABLETS, ONCE
     Route: 048
     Dates: start: 20191009, end: 20191009
  11. DARAPRIM [Suspect]
     Active Substance: PYRIMETHAMINE
     Dosage: 1 TABLETS, 1X/DAY
     Route: 048
     Dates: start: 20191010, end: 2019
  12. ZANTAC [Concomitant]
     Active Substance: RANITIDINE HYDROCHLORIDE
  13. SUBOXONE [Concomitant]
     Active Substance: BUPRENORPHINE HYDROCHLORIDE\NALOXONE HYDROCHLORIDE

REACTIONS (2)
  - Nausea [Unknown]
  - Vomiting [Unknown]

NARRATIVE: CASE EVENT DATE: 201910
